FAERS Safety Report 7433325-6 (Version None)
Quarter: 2011Q2

REPORT INFORMATION
  Report Type: 
  Country: None (occurrence: None)
  Receive Date: 20110422
  Receipt Date: 20110414
  Transmission Date: 20111010
  Serious: Yes (Other)
  Sender: FDA-Public Use
  Company Number: US-CEPHALON-2011001882

PATIENT
  Sex: Female

DRUGS (1)
  1. AMRIX [Suspect]
     Route: 048

REACTIONS (2)
  - SWOLLEN TONGUE [None]
  - DYSPNOEA [None]
